FAERS Safety Report 8018654-X (Version None)
Quarter: 2012Q1

REPORT INFORMATION
  Report Type: 
  Country: None (occurrence: None)
  Receive Date: 20120103
  Receipt Date: 20120103
  Transmission Date: 20120608
  Serious: Yes (Other)
  Sender: FDA-Public Use
  Company Number: None

PATIENT
  Age: 65 Year
  Sex: Female
  Weight: 81.646 kg

DRUGS (1)
  1. DEXILANT [Suspect]
     Indication: DUODENAL ULCER
     Dates: start: 20110914, end: 20111025

REACTIONS (3)
  - BRONCHOSPASM [None]
  - COUGH [None]
  - URTICARIA [None]
